FAERS Safety Report 10206957 (Version 1)
Quarter: 2014Q2

REPORT INFORMATION
  Report Type: Spontaneous
  Country: US (occurrence: None)
  Receive Date: 20140527
  Receipt Date: 20140527
  Transmission Date: 20141212
  Serious: Yes (Hospitalization)
  Sender: FDA-Public Use
  Company Number: None

PATIENT
  Age: 30 Year
  Sex: Male

DRUGS (1)
  1. METHADONE [Suspect]
     Indication: PAIN
     Route: 048
     Dates: end: 20120613

REACTIONS (6)
  - Dyspnoea [None]
  - Respiratory distress [None]
  - Transfusion-related acute lung injury [None]
  - Torsade de pointes [None]
  - Ventricular tachycardia [None]
  - Electrocardiogram QT prolonged [None]
